FAERS Safety Report 5341821-0 (Version None)
Quarter: 2007Q2

REPORT INFORMATION
  Report Type: 
  Country: None (occurrence: None)
  Receive Date: 20070530
  Receipt Date: 20070521
  Transmission Date: 20071010
  Serious: Yes (Death)
  Sender: FDA-Public Use
  Company Number: 2007-00408

PATIENT
  Sex: Female

DRUGS (2)
  1. VELCADE [Suspect]
     Indication: MULTIPLE MYELOMA
     Dosage: 1.00 MG, UNK, INTRAVENOUS
     Route: 042
     Dates: start: 20061102, end: 20061117
  2. DEXAMETHASONE 0.5MG TAB [Concomitant]

REACTIONS (4)
  - FEELING ABNORMAL [None]
  - GAIT DISTURBANCE [None]
  - RENAL FAILURE ACUTE [None]
  - SENSORY DISTURBANCE [None]
